FAERS Safety Report 4354765-8 (Version None)
Quarter: 2004Q2

REPORT INFORMATION
  Report Type: 
  Country: None (occurrence: None)
  Receive Date: 20040507
  Receipt Date: 20040407
  Transmission Date: 20050107
  Serious: Yes (Life-Threatening, Other)
  Sender: FDA-Public Use
  Company Number: FR-AMGEN-UK071903

PATIENT
  Age: 46 Year
  Sex: Female
  Weight: 55 kg

DRUGS (7)
  1. NEUPOGEN [Suspect]
     Indication: CHEMOTHERAPY
     Route: 058
     Dates: start: 20040220, end: 20040405
  2. FLUOROURACIL [Concomitant]
     Dates: start: 20031216
  3. EPIRUBICIN [Concomitant]
     Dates: start: 20031216
  4. CYCLOPHOSPHAMIDE [Concomitant]
     Dates: start: 20031216
  5. ZOPHREN [Concomitant]
     Dates: start: 20040403
  6. PRIMPERAN INJ [Concomitant]
     Dates: start: 20040404
  7. MEDROL [Concomitant]
     Dates: start: 20040404

REACTIONS (8)
  - DYSPHONIA [None]
  - DYSPNOEA [None]
  - EYELID OEDEMA [None]
  - HEART RATE INCREASED [None]
  - HYPOTENSION [None]
  - LOSS OF CONSCIOUSNESS [None]
  - MALAISE [None]
  - VISUAL DISTURBANCE [None]
